FAERS Safety Report 5648816-8 (Version None)
Quarter: 2008Q1

REPORT INFORMATION
  Report Type: 
  Country: None (occurrence: None)
  Receive Date: 20080304
  Receipt Date: 20080228
  Transmission Date: 20080703
  Serious: Yes (Life-Threatening, Hospitalization)
  Sender: FDA-Public Use
  Company Number: JP-ASTRAZENECA-2008AP01012

PATIENT
  Age: 52 Year
  Weight: 49 kg

DRUGS (4)
  1. MEROPEN [Suspect]
     Indication: PNEUMONIA PNEUMOCOCCAL
     Route: 041
     Dates: start: 20070516, end: 20070517
  2. UNASYN [Suspect]
     Indication: PNEUMONIA PNEUMOCOCCAL
     Route: 041
     Dates: start: 20070512, end: 20070514
  3. BROACT [Suspect]
     Indication: PNEUMONIA PNEUMOCOCCAL
     Route: 041
     Dates: start: 20070515, end: 20070516
  4. MINOCYCLINE HYDROCHLORIDE [Suspect]
     Indication: PNEUMONIA PNEUMOCOCCAL
     Route: 041
     Dates: start: 20070516, end: 20070517

REACTIONS (2)
  - ACUTE RESPIRATORY DISTRESS SYNDROME [None]
  - PNEUMONITIS [None]
